FAERS Safety Report 10166786 (Version 2)
Quarter: 2014Q2

REPORT INFORMATION
  Report Type: Spontaneous
  Country: US (occurrence: US)
  Receive Date: 20140512
  Receipt Date: 20140512
  Transmission Date: 20141212
  Serious: Yes (Hospitalization, Other)
  Sender: FDA-Public Use
  Company Number: US-NOVOPROD-408595

PATIENT
  Age: 58 Year
  Sex: Female

DRUGS (2)
  1. VAGIFEM LD [Suspect]
     Indication: HORMONE REPLACEMENT THERAPY
     Dosage: 1 TAB, 2 TIMES PER WEEK
     Route: 067
     Dates: start: 2010, end: 2012
  2. VAGIFEM LD [Suspect]
     Dosage: 1 TAB, 3 TIMES PER WEEK
     Route: 067
     Dates: start: 2012, end: 20140330

REACTIONS (3)
  - Prescribed overdose [Recovered/Resolved]
  - Vomiting [Recovered/Resolved]
  - Oesophageal ulcer [Not Recovered/Not Resolved]
